FAERS Safety Report 7595934-3 (Version None)
Quarter: 2011Q3

REPORT INFORMATION
  Report Type: 
  Country: None (occurrence: None)
  Receive Date: 20110707
  Receipt Date: 20110628
  Transmission Date: 20111222
  Serious: Yes (Other)
  Sender: FDA-Public Use
  Company Number: US-ABBOTT-11P-163-0835647-00

PATIENT
  Sex: Male
  Weight: 90.8 kg

DRUGS (11)
  1. ZETIA [Concomitant]
     Indication: PRODUCT USED FOR UNKNOWN INDICATION
     Dosage: AT NIGHT
  2. LOSARTAN POTASSIUM [Concomitant]
     Indication: BLOOD PRESSURE
     Dosage: IN MORNING
  3. ASPIRIN [Concomitant]
     Indication: CARDIAC DISORDER
     Dosage: IN MORNING
  4. NIASPAN [Suspect]
     Indication: BLOOD CHOLESTEROL INCREASED
     Dosage: AT BEDTIME
     Dates: start: 19970101
  5. PRAVACHOL [Concomitant]
     Indication: BLOOD CHOLESTEROL INCREASED
     Dosage: AT NIGHT
  6. RANEXA [Concomitant]
     Indication: CARDIAC DISORDER
  7. ISORBIDE [Concomitant]
     Indication: ANGINA PECTORIS
     Dosage: IN MORNING
  8. BYSTOLIC [Concomitant]
     Indication: BLOOD PRESSURE
     Dosage: IN MORNING
  9. PROTONIX [Concomitant]
     Indication: GASTRIC DISORDER
     Dosage: IN MORNING
  10. VITAMIN TAB [Concomitant]
     Indication: PRODUCT USED FOR UNKNOWN INDICATION
  11. EFFIENT [Concomitant]
     Indication: CARDIAC DISORDER
     Dosage: IN MORNING

REACTIONS (4)
  - FLUSHING [None]
  - ASTHENIA [None]
  - BURNING SENSATION [None]
  - ANGINA PECTORIS [None]
